FAERS Safety Report 8997058 (Version 1)
Quarter: 2013Q1

REPORT INFORMATION
  Report Type: Spontaneous
  Country: US (occurrence: US)
  Receive Date: 20130104
  Receipt Date: 20130104
  Transmission Date: 20140127
  Serious: Yes (Death)
  Sender: FDA-Public Use
  Company Number: US-PFIZER INC-2013002853

PATIENT
  Age: 22 Year
  Sex: Male

DRUGS (4)
  1. MORPHINE SULFATE [Suspect]
  2. OXYCODONE HYDROCHLORIDE [Suspect]
  3. ALPRAZOLAM [Suspect]
  4. ACETAMINOPHEN W/HYDROCODONE BITARTRATE [Suspect]

REACTIONS (1)
  - Drug abuse [Fatal]
